FAERS Safety Report 9938205 (Version 2)
Quarter: 2014Q1

REPORT INFORMATION
  Report Type: Report from Study
  Country: US (occurrence: US)
  Receive Date: 20140303
  Receipt Date: 20140303
  Transmission Date: 20141002
  Serious: No
  Sender: FDA-Public Use
  Company Number: US-ABBVIE-12P-163-0998405-00

PATIENT
  Age: 60 Year
  Sex: Male

DRUGS (2)
  1. HUMIRA [Suspect]
     Indication: RHEUMATOID ARTHRITIS
     Route: 058
     Dates: start: 20120712, end: 201208
  2. HUMIRA [Suspect]
     Route: 058

REACTIONS (6)
  - Laceration [Recovered/Resolved]
  - Drug dose omission [Recovered/Resolved]
  - Skin fragility [Unknown]
  - Gallbladder disorder [Unknown]
  - Poor peripheral circulation [Unknown]
  - Wound infection [Unknown]
